FAERS Safety Report 8231630-7 (Version None)
Quarter: 2012Q1

REPORT INFORMATION
  Report Type: 
  Country: None (occurrence: None)
  Receive Date: 20120323
  Receipt Date: 20120313
  Transmission Date: 20120608
  Serious: Yes (Hospitalization)
  Sender: FDA-Public Use
  Company Number: US-ELI_LILLY_AND_COMPANY-US201203003781

PATIENT
  Sex: Female

DRUGS (5)
  1. METOPROLOL SUCCINATE [Concomitant]
     Dosage: 25 MG, UNKNOWN
  2. EVISTA [Suspect]
     Indication: OSTEOPENIA
     Dosage: 60 MG, QD
     Dates: start: 20111101
  3. QUINAPRIL [Concomitant]
  4. HYDROCHLOROTH [Concomitant]
     Dosage: 12.5 MG, UNKNOWN
  5. SIMVASTATIN [Concomitant]
     Dosage: 1 DF, EACH EVENING

REACTIONS (4)
  - URTICARIA [None]
  - SWELLING [None]
  - LIP SWELLING [None]
  - PRURITUS [None]
